FAERS Safety Report 6266655-4 (Version None)
Quarter: 2009Q3

REPORT INFORMATION
  Report Type: 
  Country: None (occurrence: None)
  Receive Date: 20090710
  Receipt Date: 20090622
  Transmission Date: 20100115
  Serious: Yes (Hospitalization)
  Sender: FDA-Public Use
  Company Number: 20090257 /

PATIENT
  Age: 26 Year
  Sex: Female

DRUGS (7)
  1. GLYCOPYRROLATE [Suspect]
     Dosage: 0.2 MG INTRAVENOUS
     Route: 042
     Dates: start: 20090504
  2. PROPOFOL [Suspect]
     Dosage: 100 MG INTRAVENOUS
     Route: 042
     Dates: start: 20090504, end: 20090504
  3. MIDAZOLAM HCL [Suspect]
     Dosage: 1MG INTRAVENOUS
     Route: 042
     Dates: start: 20090504
  4. LIDOCAINE [Suspect]
     Indication: GENERAL ANAESTHESIA
     Dosage: 40 MG INTRAVENOUS
     Route: 042
     Dates: start: 20090504, end: 20090504
  5. FENTANYL-100 [Suspect]
     Indication: GENERAL ANAESTHESIA
     Dosage: 50 MCG INTRAVENOUS
     Route: 042
     Dates: start: 20090504, end: 20090504
  6. PHYSOSTIGMINE [Concomitant]
  7. ROMAZICON [Concomitant]

REACTIONS (10)
  - ABDOMINAL PAIN [None]
  - CHILLS [None]
  - DEPRESSED LEVEL OF CONSCIOUSNESS [None]
  - DIZZINESS [None]
  - DYSKINESIA [None]
  - HEADACHE [None]
  - INFLUENZA LIKE ILLNESS [None]
  - OPISTHOTONUS [None]
  - POST PROCEDURAL COMPLICATION [None]
  - PYREXIA [None]
